FAERS Safety Report 8319953-4 (Version None)
Quarter: 2012Q2

REPORT INFORMATION
  Report Type: 
  Country: None (occurrence: None)
  Receive Date: 20120427
  Receipt Date: 20120426
  Transmission Date: 20120825
  Serious: Yes (Hospitalization)
  Sender: FDA-Public Use
  Company Number: FR-ROCHE-1048632

PATIENT
  Sex: Male

DRUGS (4)
  1. SOMATROPIN [Suspect]
     Indication: SEPTO-OPTIC DYSPLASIA
     Route: 058
     Dates: start: 20080204
  2. HYDROCORTISONE [Concomitant]
     Dates: start: 20071204
  3. LEVOTHYROXINE SODIUM [Concomitant]
     Dosage: 10 DROPS.
     Dates: start: 20070204
  4. SOMATROPIN [Suspect]
     Indication: HYPOPITUITARISM

REACTIONS (1)
  - HYPOGLYCAEMIA [None]
